FAERS Safety Report 12243607 (Version 1)
Quarter: 2016Q2

REPORT INFORMATION
  Report Type: Other
  Country: GB (occurrence: GB)
  Receive Date: 20160406
  Receipt Date: 20160406
  Transmission Date: 20160815
  Serious: Yes (Other)
  Sender: FDA-Public Use
  Company Number: GB-MYLANLABS-2016M1013649

PATIENT

DRUGS (2)
  1. DOXYCYCLINE. [Suspect]
     Active Substance: DOXYCYCLINE
     Dosage: UNK
  2. ISOTRETINOIN [Suspect]
     Active Substance: ISOTRETINOIN
     Indication: SEBACEOUS HYPERPLASIA
     Dosage: 20 MG, QOD (ALTERNATE DAYS)
     Route: 048
     Dates: start: 20150829, end: 20151115

REACTIONS (4)
  - Headache [Not Recovered/Not Resolved]
  - Visual impairment [Unknown]
  - Dry skin [Unknown]
  - Eye pain [Unknown]

NARRATIVE: CASE EVENT DATE: 20151101
